FAERS Safety Report 10460323 (Version 2)
Quarter: 2014Q3

REPORT INFORMATION
  Report Type: Report from Study
  Country: CN (occurrence: CN)
  Receive Date: 20140917
  Receipt Date: 20140917
  Transmission Date: 20150326
  Serious: Yes (Life-Threatening, Hospitalization)
  Sender: FDA-Public Use
  Company Number: CN-EISAI MEDICAL RESEARCH-E2020-12419-CLI-CN

PATIENT
  Age: 75 Year
  Sex: Female
  Weight: 40 kg

DRUGS (7)
  1. LEVOFLOXACIN [Concomitant]
     Active Substance: LEVOFLOXACIN
     Indication: URINARY TRACT INFECTION
     Route: 048
     Dates: start: 20130517, end: 20130529
  2. DONEPEZIL [Suspect]
     Active Substance: DONEPEZIL
     Indication: DEMENTIA ALZHEIMER^S TYPE
     Route: 048
     Dates: start: 20130510, end: 20130527
  3. QUETIAPINE FUMARATE. [Concomitant]
     Active Substance: QUETIAPINE FUMARATE
     Dosage: 25 MG AT LUNCHTIME, 25 MG AT NIGHT
     Route: 048
     Dates: start: 20130530, end: 20130531
  4. DONEPEZIL [Suspect]
     Active Substance: DONEPEZIL
     Dosage: COMMERCIAL ARICEPT 5 MG
     Route: 048
     Dates: start: 20130717
  5. QUETIAPINE FUMARATE. [Concomitant]
     Active Substance: QUETIAPINE FUMARATE
     Route: 048
     Dates: start: 20130525, end: 20130530
  6. TONG BIA NLING [Concomitant]
     Indication: CONSTIPATION
     Dosage: 1.5 G QN
     Route: 048
     Dates: start: 20130506, end: 20130531
  7. QUETIAPINE FUMARATE. [Concomitant]
     Active Substance: QUETIAPINE FUMARATE
     Indication: BEHAVIOURAL AND PSYCHIATRIC SYMPTOMS OF DEMENTIA
     Dosage: 50 MG AT LUNCHTIME, 25 MG AT NIGHT
     Route: 048
     Dates: start: 20130524, end: 20130525

REACTIONS (1)
  - Altered state of consciousness [Recovered/Resolved]

NARRATIVE: CASE EVENT DATE: 20130525
